FAERS Safety Report 21601533 (Version 3)
Quarter: 2022Q4

REPORT INFORMATION
  Report Type: Spontaneous
  Country: HR (occurrence: HR)
  Receive Date: 20221116
  Receipt Date: 20221214
  Transmission Date: 20230113
  Serious: Yes (Other)
  Sender: FDA-Public Use
  Company Number: HR-002147023-NVSC2022HR255384

PATIENT
  Sex: Female

DRUGS (9)
  1. BEOVU [Suspect]
     Active Substance: BROLUCIZUMAB-DBLL
     Indication: Product used for unknown indication
     Dosage: UNK
     Route: 065
  2. ACTRAPID [Concomitant]
     Active Substance: INSULIN HUMAN
     Indication: Diabetes mellitus
     Dosage: UNK (ACCORDING TO THE LEVELS (6-14) U 4X DAILY)
     Route: 065
  3. ROSUVASTATIN [Concomitant]
     Active Substance: ROSUVASTATIN
     Indication: Product used for unknown indication
     Dosage: 10 MG, QD (0,0,1)
     Route: 065
  4. BERLITHION [Concomitant]
     Indication: Product used for unknown indication
     Dosage: 600 MG, QD (1X1)
     Route: 065
  5. AMLODIPINE\INDAPAMIDE\PERINDOPRIL [Concomitant]
     Active Substance: AMLODIPINE\INDAPAMIDE\PERINDOPRIL
     Indication: Blood pressure measurement
     Dosage: 4/1.25/10 MG, QD
     Route: 065
  6. PIROXICAM [Concomitant]
     Active Substance: PIROXICAM
     Indication: Product used for unknown indication
     Dosage: 10 MG, PRN
     Route: 065
  7. NORMABEL [Concomitant]
     Active Substance: DIAZEPAM
     Indication: Product used for unknown indication
     Dosage: UNK, PRN
     Route: 065
  8. OXAZEPAM [Concomitant]
     Active Substance: OXAZEPAM
     Indication: Product used for unknown indication
     Dosage: UNK, PRN
     Route: 065
  9. ANDOL [Concomitant]
     Active Substance: ASPIRIN
     Indication: Product used for unknown indication
     Dosage: 100 MG, QD (AFTER MEAL)
     Route: 065
     Dates: start: 20221111

REACTIONS (13)
  - Haemorrhagic stroke [Unknown]
  - Hemiplegia [Unknown]
  - Urinary incontinence [Unknown]
  - Aphasia [Unknown]
  - Vomiting [Unknown]
  - Atrial fibrillation [Unknown]
  - Urinary tract infection pseudomonal [Unknown]
  - Cerebral infarction [Unknown]
  - Cortical visual impairment [Unknown]
  - Supranuclear palsy [Unknown]
  - Blood pressure increased [Unknown]
  - Extensor plantar response [Unknown]
  - Left ventricular hypertrophy [Unknown]

NARRATIVE: CASE EVENT DATE: 20221026
